FAERS Safety Report 4726747-5 (Version None)
Quarter: 2005Q3

REPORT INFORMATION
  Report Type: 
  Country: None (occurrence: None)
  Receive Date: 20050725
  Receipt Date: 20050420
  Transmission Date: 20060218
  Serious: No
  Sender: FDA-Public Use
  Company Number: USA050496091

PATIENT
  Age: 12 Year
  Sex: Male
  Weight: 45 kg

DRUGS (2)
  1. STRATTERA [Suspect]
     Dosage: 40 MG
     Dates: start: 20050101
  2. SINGULAIR(MONTELUKAST) [Concomitant]

REACTIONS (4)
  - DIZZINESS [None]
  - ERUCTATION [None]
  - HEADACHE [None]
  - STOMACH DISCOMFORT [None]
